FAERS Safety Report 19945868 (Version 1)
Quarter: 2021Q4

REPORT INFORMATION
  Report Type: Spontaneous
  Country: JP (occurrence: JP)
  Receive Date: 20211012
  Receipt Date: 20211012
  Transmission Date: 20220303
  Serious: Yes (Other)
  Sender: FDA-Public Use
  Company Number: JP-PFIZER INC-202101284990

PATIENT
  Age: 78 Year
  Sex: Male

DRUGS (2)
  1. VFEND [Suspect]
     Active Substance: VORICONAZOLE
     Indication: Aspergillus test positive
     Dosage: 400 MG
     Route: 042
  2. VFEND [Suspect]
     Active Substance: VORICONAZOLE
     Indication: Lung disorder

REACTIONS (3)
  - Interstitial lung disease [Unknown]
  - Pyrexia [Recovered/Resolved]
  - C-reactive protein increased [Recovering/Resolving]
